FAERS Safety Report 13387679 (Version 2)
Quarter: 2017Q2

REPORT INFORMATION
  Report Type: Report from Study
  Country: DE (occurrence: DE)
  Receive Date: 20170330
  Receipt Date: 20170414
  Transmission Date: 20170830
  Serious: Yes (Life-Threatening, Hospitalization)
  Sender: FDA-Public Use
  Company Number: DE-ROCHE-1913927

PATIENT
  Sex: Female
  Weight: 63 kg

DRUGS (12)
  1. RANIBIZUMAB [Suspect]
     Active Substance: RANIBIZUMAB
     Dosage: RIGHT EYE
     Route: 050
     Dates: start: 20140625, end: 201410
  2. RANIBIZUMAB [Suspect]
     Active Substance: RANIBIZUMAB
     Dosage: 0.5 MG, 1X, PREFILLED SYRINGE, LEFT EYE
     Route: 050
     Dates: start: 20160217
  3. RANIBIZUMAB [Suspect]
     Active Substance: RANIBIZUMAB
     Dosage: 0.5 MG, 1X, PREFILLED SYRINGE, LEFT EYE
     Route: 050
     Dates: start: 20161012
  4. RANIBIZUMAB [Suspect]
     Active Substance: RANIBIZUMAB
     Dosage: 0.5 MG, 1X, PREFILLED SYRINGE, LEFT EYE
     Route: 050
     Dates: start: 20160824
  5. RANIBIZUMAB [Suspect]
     Active Substance: RANIBIZUMAB
     Dosage: RIGHT EYE
     Route: 050
     Dates: start: 20150128, end: 201505
  6. RANIBIZUMAB [Suspect]
     Active Substance: RANIBIZUMAB
     Dosage: 0.5 MG, 1X, PREFILLED SYRINGE, LEFT EYE
     Route: 050
     Dates: start: 20160316
  7. RANIBIZUMAB [Suspect]
     Active Substance: RANIBIZUMAB
     Dosage: 0.5 MG, 1X, PREFILLED SYRINGE, LEFT EYE
     Route: 050
     Dates: start: 20160622
  8. RANIBIZUMAB [Suspect]
     Active Substance: RANIBIZUMAB
     Indication: NEOVASCULAR AGE-RELATED MACULAR DEGENERATION
     Dosage: 0.5 MG, 1X, PREFILLED SYRINGE, RIGHT EYE
     Route: 050
     Dates: start: 20151111
  9. RANIBIZUMAB [Suspect]
     Active Substance: RANIBIZUMAB
     Dosage: 0.5 MG, 1X, PREFILLED SYRINGE, LEFT EYE
     Route: 050
     Dates: start: 20161207, end: 20161207
  10. RANIBIZUMAB [Suspect]
     Active Substance: RANIBIZUMAB
     Dosage: 0.5 MG, 1X, PREFILLED SYRINGE, LEFT EYE
     Route: 050
     Dates: start: 20160113
  11. RANIBIZUMAB [Suspect]
     Active Substance: RANIBIZUMAB
     Dosage: 0.5 MG, 1X, PREFILLED SYRINGE, LEFT EYE
     Route: 050
     Dates: start: 20160720
  12. RANIBIZUMAB [Suspect]
     Active Substance: RANIBIZUMAB
     Dosage: 0.5 MG, 1X, PREFILLED SYRINGE, LEFT EYE
     Route: 050
     Dates: start: 20161109

REACTIONS (1)
  - Cerebrovascular accident [Recovering/Resolving]

NARRATIVE: CASE EVENT DATE: 20161219
